FAERS Safety Report 17413664 (Version 1)
Quarter: 2020Q1

REPORT INFORMATION
  Report Type: Spontaneous
  Country: US (occurrence: US)
  Receive Date: 20200213
  Receipt Date: 20200213
  Transmission Date: 20200409
  Serious: Yes (Other)
  Sender: FDA-Public Use
  Company Number: NVSC2020US038217

PATIENT
  Age: 58 Year
  Sex: Female

DRUGS (5)
  1. CARBOPLATIN. [Suspect]
     Active Substance: CARBOPLATIN
     Dosage: UNK (3 CYCLES)
     Route: 065
  2. CARBOPLATIN. [Suspect]
     Active Substance: CARBOPLATIN
     Indication: ABDOMINAL LYMPHADENOPATHY
     Dosage: UNK (6 CYCLES)
     Route: 065
  3. PEMETREXED. [Suspect]
     Active Substance: PEMETREXED
     Dosage: UNK  (3 CYCLES)
     Route: 065
  4. PEMETREXED. [Suspect]
     Active Substance: PEMETREXED
     Indication: ABDOMINAL LYMPHADENOPATHY
     Dosage: UNK (6 CYCLES)
     Route: 065
  5. BEVACIZUMAB. [Suspect]
     Active Substance: BEVACIZUMAB
     Indication: ABDOMINAL LYMPHADENOPATHY
     Dosage: UNK (6 CYCLES)
     Route: 065

REACTIONS (4)
  - Malignant neoplasm progression [Unknown]
  - Abdominal lymphadenopathy [Unknown]
  - Product use in unapproved indication [Unknown]
  - Retroperitoneal neoplasm [Unknown]
